FAERS Safety Report 6712869-6 (Version None)
Quarter: 2010Q2

REPORT INFORMATION
  Report Type: 
  Country: None (occurrence: None)
  Receive Date: 20100505
  Receipt Date: 20100505
  Transmission Date: 20101027
  Serious: Yes (Other)
  Sender: FDA-Public Use
  Company Number: None

PATIENT
  Age: 28 Year
  Sex: Female
  Weight: 79.3795 kg

DRUGS (1)
  1. COMPAZINE [Suspect]
     Indication: NAUSEA
     Dosage: IV
     Route: 042
     Dates: start: 20100401, end: 20100430

REACTIONS (7)
  - ANXIETY [None]
  - DYSTONIA [None]
  - FEELING ABNORMAL [None]
  - FEELING JITTERY [None]
  - MUSCLE TWITCHING [None]
  - RESTLESSNESS [None]
  - SUICIDAL IDEATION [None]
